FAERS Safety Report 8166398-6 (Version None)
Quarter: 2012Q1

REPORT INFORMATION
  Report Type: 
  Country: None (occurrence: None)
  Receive Date: 20120227
  Receipt Date: 20110721
  Transmission Date: 20120608
  Serious: No
  Sender: FDA-Public Use
  Company Number: US-MYLANLABS-2011S1014589

PATIENT
  Age: 17 Year
  Sex: Male

DRUGS (6)
  1. AMNESTEEM [Suspect]
     Route: 048
     Dates: start: 20110607, end: 20110629
  2. AMNESTEEM [Suspect]
     Route: 048
     Dates: start: 20110630, end: 20110709
  3. AMNESTEEM [Suspect]
     Route: 048
     Dates: start: 20110630, end: 20110709
  4. AMNESTEEM [Suspect]
     Indication: ACNE
     Route: 048
     Dates: start: 20110501, end: 20110606
  5. LEVOTHYROXINE SODIUM [Concomitant]
  6. BENZACLIN [Concomitant]

REACTIONS (4)
  - LIP OEDEMA [None]
  - LIP DRY [None]
  - DRY SKIN [None]
  - FURUNCLE [None]
